FAERS Safety Report 9693098 (Version 1)
Quarter: 2013Q4

REPORT INFORMATION
  Report Type: Spontaneous
  Country: GB (occurrence: None)
  Receive Date: 20131114
  Receipt Date: 20131114
  Transmission Date: 20140711
  Serious: Yes (Death, Other)
  Sender: FDA-Public Use
  Company Number: 2013-003602

PATIENT
  Age: 65 Year
  Sex: Female
  Weight: 64 kg

DRUGS (3)
  1. SARAFEM [Suspect]
     Dosage: 20 MG, UNKNOWN, ORAL
     Route: 048
     Dates: start: 20120423, end: 20120503
  2. MIRTAZAPINE (UNKNOWN) (MIRTAZAPINE) UNK, UNKUNK [Suspect]
     Indication: DEPRESSION
     Dosage: 30 MG, DAILY; AT NIGHT, UNKNOWN
  3. SARAFEM [Suspect]

REACTIONS (19)
  - Completed suicide [None]
  - Dissociation [None]
  - Agitation [None]
  - Insomnia [None]
  - Emotional distress [None]
  - Anxiety [None]
  - Depression [None]
  - Malaise [None]
  - Dizziness [None]
  - Panic reaction [None]
  - Feeling abnormal [None]
  - Negative thoughts [None]
  - Somatisation disorder [None]
  - Social avoidant behaviour [None]
  - Dry eye [None]
  - Asthenopia [None]
  - Depressed mood [None]
  - Fear [None]
  - Feeling of despair [None]
